FAERS Safety Report 7329317-8 (Version None)
Quarter: 2011Q1

REPORT INFORMATION
  Report Type: 
  Country: None (occurrence: None)
  Receive Date: 20110228
  Receipt Date: 20110228
  Transmission Date: 20110831
  Serious: Yes (Other)
  Sender: FDA-Public Use
  Company Number: None

PATIENT
  Age: 54 Year
  Sex: Male
  Weight: 75.7507 kg

DRUGS (1)
  1. OXYCODONE HCL [Suspect]

REACTIONS (3)
  - PRODUCT FORMULATION ISSUE [None]
  - PAIN [None]
  - VOMITING [None]
